FAERS Safety Report 4772293-2 (Version None)
Quarter: 2005Q3

REPORT INFORMATION
  Report Type: 
  Country: None (occurrence: None)
  Receive Date: 20050919
  Receipt Date: 20050614
  Transmission Date: 20060218
  Serious: No
  Sender: FDA-Public Use
  Company Number: US-BRISTOL-MYERS SQUIBB COMPANY-13004015

PATIENT
  Age: 71 Year
  Sex: Male
  Weight: 78 kg

DRUGS (8)
  1. DEFINITY [Suspect]
     Route: 041
  2. PREDNISONE [Concomitant]
  3. PRILOSEC [Concomitant]
  4. ZOCOR [Concomitant]
  5. SUDAFED 12 HOUR [Concomitant]
  6. ADVIL [Concomitant]
  7. ASPIRIN [Concomitant]
  8. TYLENOL PM [Concomitant]

REACTIONS (1)
  - BACK PAIN [None]
